FAERS Safety Report 11217682 (Version 1)
Quarter: 2015Q2

REPORT INFORMATION
  Report Type: Spontaneous
  Country: JP (occurrence: JP)
  Receive Date: 20150625
  Receipt Date: 20150625
  Transmission Date: 20150821
  Serious: Yes (Hospitalization, Other)
  Sender: FDA-Public Use
  Company Number: JP-BRISTOL-MYERS SQUIBB COMPANY-BMS-2015-028300

PATIENT
  Age: 71 Year
  Sex: Male

DRUGS (2)
  1. ERBITUX [Suspect]
     Active Substance: CETUXIMAB
     Dosage: 350 MG, QWK
     Route: 041
     Dates: start: 20140527, end: 20140701
  2. ERBITUX [Suspect]
     Active Substance: CETUXIMAB
     Indication: HYPOPHARYNGEAL CANCER
     Dosage: 550 MG, QWK
     Route: 041
     Dates: start: 20140520

REACTIONS (5)
  - Dysphagia [Recovering/Resolving]
  - Anaemia [Recovered/Resolved]
  - Hypomagnesaemia [Recovered/Resolved]
  - Oropharyngeal pain [Recovering/Resolving]
  - Erythema [Recovered/Resolved]

NARRATIVE: CASE EVENT DATE: 20140527
